FAERS Safety Report 7010335-4 (Version None)
Quarter: 2010Q3

REPORT INFORMATION
  Report Type: 
  Country: None (occurrence: None)
  Receive Date: 20100909
  Receipt Date: 20100812
  Transmission Date: 20110219
  Serious: No
  Sender: FDA-Public Use
  Company Number: 2010SP044304

PATIENT
  Age: 57 Year
  Sex: Female

DRUGS (4)
  1. SAPHRIS [Suspect]
     Indication: PRODUCT USED FOR UNKNOWN INDICATION
  2. WELLBUTRIN [Concomitant]
  3. SEROQUEL [Concomitant]
  4. CLONAPINE [Concomitant]

REACTIONS (1)
  - TONGUE BLISTERING [None]
